FAERS Safety Report 9232719 (Version 1)
Quarter: 2013Q2

REPORT INFORMATION
  Report Type: Spontaneous
  Country: US (occurrence: US)
  Receive Date: 20130416
  Receipt Date: 20130416
  Transmission Date: 20140414
  Serious: No
  Sender: FDA-Public Use
  Company Number: US-009507513-1304USA006472

PATIENT
  Age: 50 Year
  Sex: Male

DRUGS (3)
  1. VICTRELIS [Suspect]
     Indication: HEPATITIS C
     Dosage: 800 MG, TID
     Route: 048
  2. REBETOL [Suspect]
     Dosage: UNK
  3. INTERFERON (UNSPECIFIED) [Suspect]
     Dosage: UNK

REACTIONS (4)
  - Rash [Recovered/Resolved]
  - Rash [Recovered/Resolved]
  - Eye inflammation [Unknown]
  - Eye oedema [Unknown]
